FAERS Safety Report 5116664-3 (Version None)
Quarter: 2006Q3

REPORT INFORMATION
  Report Type: 
  Country: None (occurrence: None)
  Receive Date: 20060928
  Receipt Date: 20060904
  Transmission Date: 20061208
  Serious: Yes (Hospitalization)
  Sender: FDA-Public Use
  Company Number: 2006JP003041

PATIENT
  Age: 42 Year
  Sex: Male

DRUGS (7)
  1. CEFAZOLIN [Suspect]
     Indication: DRUG USE FOR UNKNOWN INDICATION
     Dosage: 1G PER DAY
     Route: 042
     Dates: start: 20060812, end: 20060824
  2. CEFAZOLIN [Suspect]
     Dosage: 2G PER DAY
     Route: 042
     Dates: start: 20060825, end: 20060827
  3. DALACIN [Suspect]
     Indication: DRUG USE FOR UNKNOWN INDICATION
     Dosage: 1.8G PER DAY
     Route: 042
     Dates: start: 20060821, end: 20060827
  4. AMLODIN [Concomitant]
     Route: 048
     Dates: start: 20060731
  5. RIFADIN [Concomitant]
     Dates: start: 20060729
  6. BLOPRESS [Concomitant]
     Dates: start: 20060731
  7. PARIET [Concomitant]
     Route: 048
     Dates: start: 20060731

REACTIONS (4)
  - CONVULSION [None]
  - DEPRESSED LEVEL OF CONSCIOUSNESS [None]
  - DYSARTHRIA [None]
  - DYSKINESIA [None]
